FAERS Safety Report 12831232 (Version 1)
Quarter: 2016Q4

REPORT INFORMATION
  Report Type: Spontaneous
  Country: US (occurrence: US)
  Receive Date: 20161008
  Receipt Date: 20161008
  Transmission Date: 20170207
  Serious: Yes (Other)
  Sender: FDA-Public Use
  Company Number: US-TEVA-699378ACC

PATIENT
  Sex: Female

DRUGS (1)
  1. PARAGARD T 380A [Suspect]
     Active Substance: COPPER
     Dates: start: 20160130, end: 20160928

REACTIONS (3)
  - Exposure during pregnancy [Unknown]
  - Pregnancy on contraceptive [Unknown]
  - Device expulsion [Unknown]

NARRATIVE: CASE EVENT DATE: 2016
